FAERS Safety Report 14237068 (Version 2)
Quarter: 2018Q1

REPORT INFORMATION
  Report Type: Spontaneous
  Country: US (occurrence: US)
  Receive Date: 20171129
  Receipt Date: 20180208
  Transmission Date: 20180508
  Serious: No
  Sender: FDA-Public Use
  Company Number: US-JNJFOC-20171028449

PATIENT
  Age: 69 Year
  Sex: Female
  Weight: 65.77 kg

DRUGS (4)
  1. LOVASTATIN. [Concomitant]
     Active Substance: LOVASTATIN
     Indication: BLOOD CHOLESTEROL INCREASED
     Route: 065
  2. COQ10 [Concomitant]
     Active Substance: UBIDECARENONE
     Indication: GENERAL PHYSICAL CONDITION
     Route: 065
  3. GABAPENTIN. [Concomitant]
     Active Substance: GABAPENTIN
     Indication: PAIN IN EXTREMITY
     Route: 065
  4. TYLENOL EXTRA STRENGTH [Suspect]
     Active Substance: ACETAMINOPHEN
     Indication: RESTLESS LEGS SYNDROME
     Route: 048
     Dates: start: 20171022, end: 20171022

REACTIONS (3)
  - Nightmare [Recovered/Resolved]
  - Product formulation issue [Unknown]
  - Product use in unapproved indication [Unknown]

NARRATIVE: CASE EVENT DATE: 20171022
